FAERS Safety Report 20161425 (Version 3)
Quarter: 2022Q1

REPORT INFORMATION
  Report Type: Spontaneous
  Country: US (occurrence: US)
  Receive Date: 20211208
  Receipt Date: 20220107
  Transmission Date: 20220423
  Serious: No
  Sender: FDA-Public Use
  Company Number: US-JNJFOC-20211152554

PATIENT
  Age: 68 Year
  Sex: Female
  Weight: 87.622 kg

DRUGS (2)
  1. SIMPONI [Suspect]
     Active Substance: GOLIMUMAB
     Indication: Rheumatoid arthritis
     Dosage: DOSING STRENGTH: 50.00 MG / 0.50 ML
     Route: 058
     Dates: start: 202009
  2. METHOTREXATE [Concomitant]
     Active Substance: METHOTREXATE
     Indication: Arthritis

REACTIONS (3)
  - Device issue [Unknown]
  - Device failure [Unknown]
  - Product dose omission issue [Unknown]

NARRATIVE: CASE EVENT DATE: 20211122
